FAERS Safety Report 6135510-2 (Version None)
Quarter: 2009Q1

REPORT INFORMATION
  Report Type: 
  Country: None (occurrence: None)
  Receive Date: 20090327
  Receipt Date: 20090323
  Transmission Date: 20090719
  Serious: Yes (Hospitalization)
  Sender: FDA-Public Use
  Company Number: B0563999A

PATIENT
  Sex: Female
  Weight: 20 kg

DRUGS (1)
  1. RELENZA [Suspect]
     Indication: INFLUENZA
     Dosage: 10MG TWICE PER DAY
     Route: 055
     Dates: start: 20090226, end: 20090302

REACTIONS (7)
  - ABNORMAL BEHAVIOUR [None]
  - ANOREXIA [None]
  - DEHYDRATION [None]
  - DISTURBANCE IN ATTENTION [None]
  - ENCEPHALITIS [None]
  - KETOSIS [None]
  - LISTLESS [None]
